FAERS Safety Report 10419712 (Version 1)
Quarter: 2014Q3

REPORT INFORMATION
  Report Type: Spontaneous
  Country: US (occurrence: US)
  Receive Date: 20140829
  Receipt Date: 20140829
  Transmission Date: 20150326
  Serious: Yes (Death)
  Sender: FDA-Public Use
  Company Number: US-BAXTER-2014BAX050632

PATIENT
  Age: 56 Year
  Sex: Female

DRUGS (16)
  1. HEPARIN [Suspect]
     Active Substance: HEPARIN SODIUM
     Indication: VENTRICULAR TACHYCARDIA
  2. CLOPIDOGREL [Suspect]
     Active Substance: CLOPIDOGREL BISULFATE
     Indication: VENTRICULAR EXTRASYSTOLES
  3. CLOPIDOGREL [Suspect]
     Active Substance: CLOPIDOGREL BISULFATE
     Indication: VENTRICULAR TACHYCARDIA
  4. METOPROLOL [Suspect]
     Active Substance: METOPROLOL
     Indication: VENTRICULAR EXTRASYSTOLES
  5. METOPROLOL [Suspect]
     Active Substance: METOPROLOL
     Indication: VENTRICULAR TACHYCARDIA
  6. BENAZEPRIL HYDROCHLORIDE. [Suspect]
     Active Substance: BENAZEPRIL HYDROCHLORIDE
     Indication: VENTRICULAR EXTRASYSTOLES
  7. BENAZEPRIL HYDROCHLORIDE. [Suspect]
     Active Substance: BENAZEPRIL HYDROCHLORIDE
     Indication: VENTRICULAR TACHYCARDIA
  8. ISOSORBIDE MONONITRATE. [Suspect]
     Active Substance: ISOSORBIDE MONONITRATE
     Indication: VENTRICULAR TACHYCARDIA
  9. ISOSORBIDE MONONITRATE. [Suspect]
     Active Substance: ISOSORBIDE MONONITRATE
     Indication: VENTRICULAR EXTRASYSTOLES
  10. LIDOCAINE HYDROCHLORIDE AND 5% DEXTROSE INJECTION, USP [Suspect]
     Active Substance: LIDOCAINE HYDROCHLORIDE
     Indication: VENTRICULAR EXTRASYSTOLES
     Route: 042
  11. LIDOCAINE HYDROCHLORIDE AND 5% DEXTROSE INJECTION, USP [Suspect]
     Active Substance: LIDOCAINE HYDROCHLORIDE
     Indication: VENTRICULAR TACHYCARDIA
  12. HEPARIN [Suspect]
     Active Substance: HEPARIN SODIUM
     Indication: VENTRICULAR EXTRASYSTOLES
  13. ASPIRIN. [Suspect]
     Active Substance: ASPIRIN
     Indication: VENTRICULAR EXTRASYSTOLES
  14. ASPIRIN. [Suspect]
     Active Substance: ASPIRIN
     Indication: VENTRICULAR TACHYCARDIA
  15. FLUVASTATIN [Suspect]
     Active Substance: FLUVASTATIN SODIUM
     Indication: VENTRICULAR EXTRASYSTOLES
  16. FLUVASTATIN [Suspect]
     Active Substance: FLUVASTATIN SODIUM
     Indication: VENTRICULAR TACHYCARDIA

REACTIONS (2)
  - Ventricular fibrillation [Fatal]
  - Ventricular tachycardia [Fatal]
